FAERS Safety Report 14611127 (Version 1)
Quarter: 2018Q1

REPORT INFORMATION
  Report Type: Report from Study
  Country: UA (occurrence: UA)
  Receive Date: 20180308
  Receipt Date: 20180308
  Transmission Date: 20180509
  Serious: Yes (Hospitalization, Other)
  Sender: FDA-Public Use
  Company Number: UA-ROCHE-1892080

PATIENT
  Age: 71 Year
  Sex: Male
  Weight: 90 kg

DRUGS (39)
  1. ROSUVASTATIN. [Concomitant]
     Active Substance: ROSUVASTATIN
     Indication: MYOCARDIAL ISCHAEMIA
     Route: 065
     Dates: start: 201403, end: 20170329
  2. ACETYLSALICYLIC ACID [Concomitant]
     Active Substance: ASPIRIN
     Indication: MYOCARDIAL ISCHAEMIA
     Route: 065
     Dates: start: 201403, end: 20170321
  3. ACETYLSALICYLIC ACID [Concomitant]
     Active Substance: ASPIRIN
     Indication: HYPERTENSION
  4. DIPHENHYDRAMINUM [Concomitant]
     Route: 065
     Dates: start: 20170216, end: 20170216
  5. ONDANSETRON [Concomitant]
     Active Substance: ONDANSETRON
     Indication: PREMEDICATION
     Route: 065
     Dates: start: 20170126, end: 20170126
  6. FENSPIRIDE [Concomitant]
     Active Substance: FENSPIRIDE
     Indication: RESPIRATORY TRACT INFECTION VIRAL
     Route: 065
     Dates: start: 20170207, end: 20170213
  7. CEFTRIAXONE. [Concomitant]
     Active Substance: CEFTRIAXONE
     Indication: INFECTION PROPHYLAXIS
     Route: 065
     Dates: start: 20170209, end: 20170213
  8. BEVACIZUMAB. [Suspect]
     Active Substance: BEVACIZUMAB
     Indication: NON-SMALL CELL LUNG CANCER STAGE IV
     Dosage: MOST RECENT DOSE (1350MG) PRIOR TO NEUTROPENIA: 26/JAN/2017?MOST RECENT DOSE (1350 MG) PRIOR TO THRO
     Route: 042
     Dates: start: 20161215
  9. HYDROCHLOROTHIAZIDE. [Concomitant]
     Active Substance: HYDROCHLOROTHIAZIDE
     Indication: HYPERTENSION
     Route: 065
     Dates: start: 201403, end: 20170329
  10. RANITIDINUM [Concomitant]
     Route: 065
     Dates: start: 20170216, end: 20170216
  11. LAKTOVIT [Concomitant]
     Indication: PROPHYLAXIS
     Route: 065
     Dates: start: 20170209, end: 20170213
  12. MANNITOL. [Concomitant]
     Active Substance: MANNITOL
     Route: 065
     Dates: start: 20170216, end: 20170216
  13. ENALAPRIL [Concomitant]
     Active Substance: ENALAPRIL
     Indication: HYPERTENSION
     Route: 065
     Dates: start: 201403, end: 20170329
  14. METFORMIN [Concomitant]
     Active Substance: METFORMIN HYDROCHLORIDE
     Indication: TYPE 2 DIABETES MELLITUS
     Route: 065
     Dates: start: 201403
  15. XYLOMETAZOLINE [Concomitant]
     Active Substance: XYLOMETAZOLINE
     Indication: RESPIRATORY TRACT INFECTION VIRAL
     Route: 065
     Dates: start: 20170207, end: 20170213
  16. CARDIOMAGNYL [Concomitant]
     Active Substance: ASPIRIN\MAGNESIUM HYDROXIDE
     Indication: PROPHYLAXIS
     Route: 065
     Dates: start: 20170329
  17. PERINDOPRIL [Concomitant]
     Active Substance: PERINDOPRIL
     Indication: HYPERTENSION
     Route: 065
     Dates: start: 201403, end: 20170329
  18. TARDYFERON (UKRAINE) [Concomitant]
     Indication: ANAEMIA
     Route: 065
     Dates: start: 20161230, end: 20170426
  19. ONDANSETRON [Concomitant]
     Active Substance: ONDANSETRON
     Route: 065
     Dates: start: 20170216, end: 20170216
  20. ADEMETIONINE [Concomitant]
     Active Substance: ADEMETIONINE
     Route: 065
     Dates: start: 20170317, end: 20170321
  21. REAMBERIN [Concomitant]
     Route: 065
     Dates: start: 20170216, end: 20170216
  22. TRIMETAZIDINE [Concomitant]
     Active Substance: TRIMETAZIDINE
     Indication: PROPHYLAXIS
     Route: 065
     Dates: start: 20170329, end: 20170612
  23. BICYCLOL [Concomitant]
     Active Substance: BICYCLOL
     Route: 065
     Dates: start: 20170609, end: 20170614
  24. GLIMEPIRIDE. [Concomitant]
     Active Substance: GLIMEPIRIDE
     Indication: TYPE 2 DIABETES MELLITUS
     Route: 065
     Dates: start: 201403
  25. DIPHENHYDRAMINUM [Concomitant]
     Indication: PREMEDICATION
     Route: 065
     Dates: start: 20170126, end: 20170126
  26. TRACHISAN (UKRAINE) [Concomitant]
     Indication: RESPIRATORY TRACT INFECTION VIRAL
     Route: 065
     Dates: start: 20170207, end: 20170213
  27. HAPPYLOR [Concomitant]
     Indication: RESPIRATORY TRACT INFECTION VIRAL
     Route: 065
     Dates: start: 20170207, end: 20170213
  28. ORASEPT (PHENOL) [Concomitant]
     Indication: RESPIRATORY TRACT INFECTION VIRAL
     Route: 065
     Dates: start: 20170207, end: 20170213
  29. ATEZOLIZUMAB. [Suspect]
     Active Substance: ATEZOLIZUMAB
     Indication: NON-SMALL CELL LUNG CANCER STAGE IV
     Dosage: MOST RECENT DOSE PRIOR TO NEUTROPENIA: 26/JAN/2017.?MOST RECENT DOSE PRIOR TO THROMBOCYTOPENIA: 16/F
     Route: 042
     Dates: start: 20161215
  30. CARBOPLATIN. [Suspect]
     Active Substance: CARBOPLATIN
     Indication: NON-SMALL CELL LUNG CANCER STAGE IV
     Dosage: TARGET AREA UNDER THE CONCENTRATION CURVE (AUC) 6 MG/ML/MIN?MOST RECENT DOSE (869MG) PRIOR TO NEUTRO
     Route: 042
     Dates: start: 20161215
  31. RANITIDINUM [Concomitant]
     Indication: PREMEDICATION
     Route: 065
     Dates: start: 20170126, end: 20170126
  32. METOCLOPRAMIDE. [Concomitant]
     Active Substance: METOCLOPRAMIDE
     Indication: NAUSEA
     Route: 065
     Dates: start: 20170128, end: 20170201
  33. AMBROXOL [Concomitant]
     Active Substance: AMBROXOL
     Indication: COUGH
     Route: 055
     Dates: start: 20170209, end: 20170213
  34. NOLIPREL [Concomitant]
     Indication: HYPERTENSION
     Route: 065
     Dates: start: 20170329, end: 20170612
  35. BISOPROLOL [Concomitant]
     Active Substance: BISOPROLOL
     Indication: HYPERTENSION
     Route: 065
     Dates: start: 20170329
  36. PACLITAXEL. [Suspect]
     Active Substance: PACLITAXEL
     Indication: NON-SMALL CELL LUNG CANCER STAGE IV
     Dosage: MOST RECENT DOSE OF PACLITAXEL (426MG) PRIOR TO NEUTROPENIA: 26/JAN/2017?MOST RECENT DOSE (426 MG) P
     Route: 042
     Dates: start: 20161215
  37. SILICON DIOXIDE [Concomitant]
     Active Substance: SILICON DIOXIDE
     Route: 065
     Dates: start: 20170309, end: 20170325
  38. ROSUVASTATIN. [Concomitant]
     Active Substance: ROSUVASTATIN
     Indication: HYPERTENSION
     Route: 065
     Dates: start: 20170329, end: 20170612
  39. AMBROXOL [Concomitant]
     Active Substance: AMBROXOL
     Route: 065
     Dates: start: 20170213, end: 20170224

REACTIONS (3)
  - Neutropenia [Recovered/Resolved]
  - Thrombocytopenia [Recovered/Resolved]
  - Hepatitis toxic [Not Recovered/Not Resolved]

NARRATIVE: CASE EVENT DATE: 20170208
